FAERS Safety Report 9136238 (Version 1)
Quarter: 2013Q1

REPORT INFORMATION
  Report Type: Spontaneous
  Country: GB (occurrence: GB)
  Receive Date: 20130304
  Receipt Date: 20130304
  Transmission Date: 20140127
  Serious: Yes (Other)
  Sender: FDA-Public Use
  Company Number: GB-GLAXOSMITHKLINE-B0869412A

PATIENT
  Sex: Female

DRUGS (5)
  1. LAMICTAL [Suspect]
     Indication: BIPOLAR DISORDER
     Route: 065
     Dates: start: 2004
  2. AMOXICILLIN [Suspect]
     Indication: PRODUCT USED FOR UNKNOWN INDICATION
     Route: 065
  3. IVABRADINE HYDROCHLORIDE [Concomitant]
  4. CLOBAZAM [Concomitant]
  5. CLOPIDOGREL [Concomitant]

REACTIONS (7)
  - Lupus-like syndrome [Not Recovered/Not Resolved]
  - Systemic lupus erythematosus [Not Recovered/Not Resolved]
  - Arthralgia [Not Recovered/Not Resolved]
  - Fatigue [Not Recovered/Not Resolved]
  - Myalgia [Not Recovered/Not Resolved]
  - Contusion [Not Recovered/Not Resolved]
  - Drug interaction [Unknown]
